FAERS Safety Report 21023007 (Version 1)
Quarter: 2022Q2

REPORT INFORMATION
  Report Type: Report from Study
  Country: RU (occurrence: RU)
  Receive Date: 20220629
  Receipt Date: 20220629
  Transmission Date: 20220721
  Serious: Yes (Life-Threatening, Hospitalization, Other)
  Sender: FDA-Public Use
  Company Number: RU-CELGENE-RUS-20210806985

PATIENT
  Sex: Female

DRUGS (1)
  1. Juno Bio-T [Concomitant]
     Indication: Contraception
     Dosage: FREQUENCY TEXT: CONTINUOUS
     Dates: start: 20171008

REACTIONS (1)
  - COVID-19 pneumonia [Recovered/Resolved]

NARRATIVE: CASE EVENT DATE: 20210822
